FAERS Safety Report 15669319 (Version 2)
Quarter: 2019Q1

REPORT INFORMATION
  Report Type: Spontaneous
  Country: US (occurrence: US)
  Receive Date: 20181129
  Receipt Date: 20190129
  Transmission Date: 20190417
  Serious: Yes (Other)
  Sender: FDA-Public Use
  Company Number: US-ROCHE-2221892

PATIENT
  Age: 61 Year
  Sex: Female
  Weight: 74.91 kg

DRUGS (7)
  1. SHINGRIX [Concomitant]
     Active Substance: RECOMBINANT VARICELLA ZOSTER VIRUS (VZV) GLYCOPROTEIN E
     Route: 065
     Dates: start: 20180907, end: 20180907
  2. RITUXAN [Suspect]
     Active Substance: RITUXIMAB
     Indication: B-CELL LYMPHOMA
     Route: 065
     Dates: start: 201712, end: 20180510
  3. HEPATITIS B VACCINE [Concomitant]
     Active Substance: HEPATITIS B VIRUS VACCINE
     Route: 065
     Dates: start: 20180911, end: 20180911
  4. FLU VACCINE (UNK INGREDIENTS) [Concomitant]
     Route: 065
     Dates: start: 20180911, end: 20180911
  5. BENDAMUSTINE [Concomitant]
     Active Substance: BENDAMUSTINE
     Indication: B-CELL LYMPHOMA
     Route: 065
     Dates: start: 201712, end: 20180510
  6. ASPIRIN. [Concomitant]
     Active Substance: ASPIRIN
     Route: 065
  7. DEPLIN (CALCIUM L-METHYLFOLATE) [Concomitant]

REACTIONS (4)
  - Herpes zoster [Recovered/Resolved]
  - Malaise [Recovered/Resolved]
  - Rash [Recovered/Resolved]
  - Malignant melanoma [Recovered/Resolved]

NARRATIVE: CASE EVENT DATE: 20180924
